FAERS Safety Report 4897817-6 (Version None)
Quarter: 2006Q1

REPORT INFORMATION
  Report Type: 
  Country: None (occurrence: None)
  Receive Date: 20060201
  Receipt Date: 20030603
  Transmission Date: 20060701
  Serious: Yes (Hospitalization)
  Sender: FDA-Public Use
  Company Number: US-GLAXOSMITHKLINE-A0411071A

PATIENT
  Age: 49 Year
  Sex: Female
  Weight: 64.5 kg

DRUGS (4)
  1. PAXIL [Suspect]
     Indication: DEPRESSION
     Dosage: 20MG PER DAY
     Route: 048
     Dates: start: 19980303, end: 19980324
  2. DALMANE [Concomitant]
     Dates: start: 19840113
  3. INDERAL [Concomitant]
     Dosage: 10MG TWICE PER DAY
     Dates: start: 19840113
  4. AMBIEN [Concomitant]
     Dosage: 5MG AT NIGHT
     Dates: start: 19980201

REACTIONS (25)
  - ABASIA [None]
  - ABNORMAL BEHAVIOUR [None]
  - AMNESIA [None]
  - ANXIETY [None]
  - CONDITION AGGRAVATED [None]
  - CRYING [None]
  - DRUG INEFFECTIVE [None]
  - DRUG WITHDRAWAL SYNDROME [None]
  - DYSARTHRIA [None]
  - FATIGUE [None]
  - FEELING ABNORMAL [None]
  - GASTROOESOPHAGEAL REFLUX DISEASE [None]
  - HEMIPARESIS [None]
  - ILL-DEFINED DISORDER [None]
  - IMPAIRED DRIVING ABILITY [None]
  - INSOMNIA [None]
  - INTENTIONAL SELF-INJURY [None]
  - PELVIC FRACTURE [None]
  - PNEUMOTHORAX [None]
  - RIB FRACTURE [None]
  - SLUGGISHNESS [None]
  - SUICIDE ATTEMPT [None]
  - TOOTH DISORDER [None]
  - TRAUMATIC BRAIN INJURY [None]
  - WHEELCHAIR USER [None]
